FAERS Safety Report 11803941 (Version 2)
Quarter: 2016Q1

REPORT INFORMATION
  Report Type: Spontaneous
  Country: US (occurrence: US)
  Receive Date: 20151204
  Receipt Date: 20160224
  Transmission Date: 20160525
  Serious: Yes (Death, Hospitalization)
  Sender: FDA-Public Use
  Company Number: US-SA-2015SA204486

PATIENT
  Sex: Female

DRUGS (9)
  1. CHLORZOXAZONE. [Concomitant]
     Active Substance: CHLORZOXAZONE
  2. AMPYRA [Concomitant]
     Active Substance: DALFAMPRIDINE
  3. ADVAIR HFA [Concomitant]
     Active Substance: FLUTICASONE PROPIONATE\SALMETEROL XINAFOATE
  4. AUBAGIO [Suspect]
     Active Substance: TERIFLUNOMIDE
     Indication: MULTIPLE SCLEROSIS
     Route: 065
  5. WELLBUTRIN [Concomitant]
     Active Substance: BUPROPION HYDROCHLORIDE
  6. GABAPENTIN. [Concomitant]
     Active Substance: GABAPENTIN
  7. CLONAZEPAM. [Concomitant]
     Active Substance: CLONAZEPAM
  8. VESICARE [Concomitant]
     Active Substance: SOLIFENACIN SUCCINATE
  9. PROAIR HFA [Concomitant]
     Active Substance: ALBUTEROL SULFATE

REACTIONS (2)
  - Hepatic failure [Unknown]
  - Peritonitis bacterial [Fatal]
